FAERS Safety Report 5410257-6 (Version None)
Quarter: 2007Q3

REPORT INFORMATION
  Report Type: 
  Country: None (occurrence: None)
  Receive Date: 20070808
  Receipt Date: 20070726
  Transmission Date: 20080115
  Serious: Yes (Hospitalization)
  Sender: FDA-Public Use
  Company Number: 236224K07USA

PATIENT
  Age: 56 Year
  Sex: Female

DRUGS (6)
  1. REBIF [Suspect]
     Indication: MULTIPLE SCLEROSIS
     Dosage: 8.8 MCG, 3 IN 1 WEEKS, SUBCUTANEOUS; 22 MCG, 3 IN 1 WEEKS, SUBCUTANEOUS
     Route: 058
     Dates: start: 20070625, end: 20070701
  2. REBIF [Suspect]
     Indication: MULTIPLE SCLEROSIS
     Dosage: 8.8 MCG, 3 IN 1 WEEKS, SUBCUTANEOUS; 22 MCG, 3 IN 1 WEEKS, SUBCUTANEOUS
     Route: 058
     Dates: start: 20070701
  3. PREDNISONE [Suspect]
     Dates: start: 20060101
  4. NEURONTIN [Concomitant]
  5. CALCIUM (CALCIUM-SANDOZ /00009901/) [Concomitant]
  6. ACTONEL [Concomitant]

REACTIONS (4)
  - BLOOD POTASSIUM DECREASED [None]
  - BLOOD PRESSURE ABNORMAL [None]
  - DRUG DOSE OMISSION [None]
  - FATIGUE [None]
